FAERS Safety Report 5711115-X (Version None)
Quarter: 2008Q2

REPORT INFORMATION
  Report Type: 
  Country: None (occurrence: None)
  Receive Date: 20080416
  Receipt Date: 20080416
  Transmission Date: 20081010
  Serious: Yes (Life-Threatening)
  Sender: FDA-Public Use
  Company Number: None

PATIENT
  Age: 52 Year
  Weight: 72.1219 kg

DRUGS (1)
  1. GABAPENTIN [Suspect]
     Indication: ANXIETY

REACTIONS (18)
  - AMNESIA [None]
  - ASTHENIA [None]
  - CONCUSSION [None]
  - CONFUSIONAL STATE [None]
  - FEAR [None]
  - HEADACHE [None]
  - HYPOTENSION [None]
  - IMPAIRED WORK ABILITY [None]
  - JOINT INJURY [None]
  - JOINT SPRAIN [None]
  - LOSS OF CONSCIOUSNESS [None]
  - LOWER LIMB FRACTURE [None]
  - MASS [None]
  - MENTAL IMPAIRMENT [None]
  - PAIN [None]
  - STRESS [None]
  - SWELLING [None]
  - SWELLING FACE [None]
